FAERS Safety Report 7232880-9 (Version None)
Quarter: 2011Q1

REPORT INFORMATION
  Report Type: 
  Country: None (occurrence: None)
  Receive Date: 20110119
  Receipt Date: 20110114
  Transmission Date: 20110831
  Serious: Yes (Hospitalization, Other)
  Sender: FDA-Public Use
  Company Number: FR-PFIZER INC-2011009399

PATIENT
  Age: 49 Year
  Sex: Male

DRUGS (2)
  1. RIVOTRIL [Suspect]
     Route: 048
  2. XANAX [Suspect]
     Route: 048

REACTIONS (2)
  - DRUG SCREEN POSITIVE [None]
  - POISONING DELIBERATE [None]
